FAERS Safety Report 4358192-9 (Version None)
Quarter: 2004Q2

REPORT INFORMATION
  Report Type: 
  Country: None (occurrence: None)
  Receive Date: 20040513
  Receipt Date: 20040513
  Transmission Date: 20050107
  Serious: Yes (Disabling)
  Sender: FDA-Public Use
  Company Number: None

PATIENT
  Age: 43 Year
  Sex: Female
  Weight: 113.3993 kg

DRUGS (1)
  1. EFFEXOR [Suspect]
     Indication: ANXIETY
     Dosage: ONE A DAY
     Dates: start: 20030606, end: 20040430

REACTIONS (9)
  - CRYING [None]
  - DRUG DEPENDENCE [None]
  - DRUG WITHDRAWAL SYNDROME [None]
  - FEELING COLD [None]
  - LOSS OF LIBIDO [None]
  - NIGHTMARE [None]
  - SCREAMING [None]
  - THINKING ABNORMAL [None]
  - WEIGHT INCREASED [None]
